FAERS Safety Report 5317744-X (Version None)
Quarter: 2007Q2

REPORT INFORMATION
  Report Type: 
  Country: None (occurrence: None)
  Receive Date: 20070503
  Receipt Date: 20070503
  Transmission Date: 20071010
  Serious: Yes (Other)
  Sender: FDA-Public Use
  Company Number: None

PATIENT

DRUGS (3)
  1. PROPOFOL [Suspect]
     Indication: SEDATION
     Dates: start: 20070425, end: 20070501
  2. PROPOFOL [Suspect]
  3. PROPOFOL [Suspect]

REACTIONS (9)
  - BACK PAIN [None]
  - CHILLS [None]
  - HEADACHE [None]
  - HYPOAESTHESIA ORAL [None]
  - NEUTROPHIL COUNT INCREASED [None]
  - PAIN [None]
  - PARAESTHESIA [None]
  - PHARMACEUTICAL PRODUCT COMPLAINT [None]
  - PYREXIA [None]
